FAERS Safety Report 18566894 (Version 6)
Quarter: 2022Q4

REPORT INFORMATION
  Report Type: Report from Study
  Country: SE (occurrence: SE)
  Receive Date: 20201201
  Receipt Date: 20221206
  Transmission Date: 20230112
  Serious: Yes (Hospitalization, Other)
  Sender: FDA-Public Use
  Company Number: NO-ABBVIE-20K-122-3668784-00

PATIENT
  Sex: Female
  Weight: 80 kg

DRUGS (6)
  1. CARBIDOPA\LEVODOPA [Suspect]
     Active Substance: CARBIDOPA\LEVODOPA
     Indication: Parkinson^s disease
     Dosage: THERAPY DURATION: REMAINS AT 16H
     Route: 050
     Dates: start: 20200922
  2. CARBIDOPA\LEVODOPA [Suspect]
     Active Substance: CARBIDOPA\LEVODOPA
     Dosage: MORNING DOSE INCREASED FROM 2.0ML TO 3ML.
     Dates: start: 20221202
  3. CARBIDOPA\LEVODOPA [Suspect]
     Active Substance: CARBIDOPA\LEVODOPA
     Dosage: CURRENT DOSAGE: MORNING DOSE: 8 ML, CONTINUOUS DOSE: 4.3 ML/H,?EXTRA DOSE: 1.5 ML, LAST ADMIN DAT...
     Route: 050
     Dates: start: 20210107
  4. CARBIDOPA\LEVODOPA [Suspect]
     Active Substance: CARBIDOPA\LEVODOPA
     Dosage: CD NIGHT: 2.2ML/H, ED NIGHT: 1.5ML. THERAPY DURATION: INCREASED TO 24H.
     Route: 050
     Dates: start: 20210510
  5. ASPIRIN [Concomitant]
     Active Substance: ASPIRIN
     Indication: Myocardial infarction
  6. BENSERAZIDE HYDROCHLORIDE\LEVODOPA [Concomitant]
     Active Substance: BENSERAZIDE HYDROCHLORIDE\LEVODOPA
     Indication: Product used for unknown indication
     Dosage: 100 MG/25 MG

REACTIONS (18)
  - Gastrostomy [Unknown]
  - Amnesia [Unknown]
  - Renal failure [Unknown]
  - Pneumonia [Recovered/Resolved]
  - Blood potassium decreased [Recovering/Resolving]
  - Poor quality sleep [Not Recovered/Not Resolved]
  - Musculoskeletal stiffness [Unknown]
  - Abdominal pain upper [Unknown]
  - On and off phenomenon [Unknown]
  - Walking aid user [Unknown]
  - Hypokalaemia [Unknown]
  - Unevaluable event [Unknown]
  - Hyperkinesia [Not Recovered/Not Resolved]
  - Middle insomnia [Unknown]
  - Fatigue [Not Recovered/Not Resolved]
  - Unevaluable event [Unknown]
  - Hallucination [Unknown]
  - Blood pressure orthostatic [Unknown]

NARRATIVE: CASE EVENT DATE: 20200101
